FAERS Safety Report 21281205 (Version 1)
Quarter: 2022Q3

REPORT INFORMATION
  Report Type: Spontaneous
  Country: AU (occurrence: AU)
  Receive Date: 20220901
  Receipt Date: 20220901
  Transmission Date: 20221027
  Serious: Yes (Other)
  Sender: FDA-Public Use
  Company Number: AU-BAYER-2022P012604

PATIENT
  Age: 60 Year
  Sex: Male

DRUGS (3)
  1. LAROTRECTINIB [Suspect]
     Active Substance: LAROTRECTINIB
     Indication: Pulmonary mass
     Dosage: UNK
     Dates: start: 201907
  2. LAROTRECTINIB [Suspect]
     Active Substance: LAROTRECTINIB
     Indication: Salivary gland neoplasm
  3. LAROTRECTINIB [Suspect]
     Active Substance: LAROTRECTINIB
     Indication: Metastases to bone

REACTIONS (1)
  - Salivary gland cancer [None]

NARRATIVE: CASE EVENT DATE: 20200101
